FAERS Safety Report 12551715 (Version 3)
Quarter: 2018Q2

REPORT INFORMATION
  Report Type: Spontaneous
  Country: US (occurrence: US)
  Receive Date: 20160713
  Receipt Date: 20180510
  Transmission Date: 20180711
  Serious: No
  Sender: FDA-Public Use
  Company Number: US-009507513-1606USA014332

PATIENT
  Sex: Male

DRUGS (6)
  1. MEMANTINE. [Concomitant]
     Active Substance: MEMANTINE
  2. PAROXETINE. [Concomitant]
     Active Substance: PAROXETINE
  3. CLOPIDOGREL [Concomitant]
     Active Substance: CLOPIDOGREL BISULFATE
  4. SYLATRON [Suspect]
     Active Substance: PEGINTERFERON ALFA-2B
     Dosage: UNK, QW
     Route: 058
     Dates: start: 20150923
  5. HUMALOG [Concomitant]
     Active Substance: INSULIN LISPRO
  6. SYLATRON [Suspect]
     Active Substance: PEGINTERFERON ALFA-2B
     Indication: MALIGNANT MELANOMA
     Dosage: UNK, QW
     Route: 058
     Dates: start: 20150922

REACTIONS (6)
  - Diarrhoea [Unknown]
  - Memory impairment [Not Recovered/Not Resolved]
  - Malaise [Not Recovered/Not Resolved]
  - Asthenia [Unknown]
  - Decreased appetite [Unknown]
  - Nausea [Unknown]

NARRATIVE: CASE EVENT DATE: 2016
